FAERS Safety Report 12657111 (Version 1)
Quarter: 2016Q3

REPORT INFORMATION
  Report Type: Spontaneous
  Country: US (occurrence: US)
  Receive Date: 20160816
  Receipt Date: 20160816
  Transmission Date: 20161109
  Serious: No
  Sender: FDA-Public Use
  Company Number: US-B.I. PHARMACEUTICALS,INC./RIDGEFIELD-2016-BI-51228BP

PATIENT
  Age: 69 Year
  Sex: Female

DRUGS (1)
  1. PRADAXA [Suspect]
     Active Substance: DABIGATRAN ETEXILATE MESYLATE
     Indication: AUTOSOMAL CHROMOSOME ANOMALY
     Dosage: 75 MG
     Route: 048
     Dates: start: 20160725, end: 20160728

REACTIONS (4)
  - Urticaria [Not Recovered/Not Resolved]
  - Off label use [Unknown]
  - Pruritus generalised [Not Recovered/Not Resolved]
  - Memory impairment [Unknown]

NARRATIVE: CASE EVENT DATE: 20160725
